FAERS Safety Report 9691962 (Version 4)
Quarter: 2017Q4

REPORT INFORMATION
  Report Type: Report from Study
  Country: US (occurrence: US)
  Receive Date: 20131118
  Receipt Date: 20171020
  Transmission Date: 20180321
  Serious: Yes (Hospitalization)
  Sender: FDA-Public Use
  Company Number: US-ROCHE-1304033

PATIENT
  Age: 43 Year
  Sex: Male

DRUGS (32)
  1. FEXOFENADINE HCL [Concomitant]
     Active Substance: FEXOFENADINE HYDROCHLORIDE
     Indication: HYPERSENSITIVITY
     Dosage: 1 TABLET DAILY PRN FOR ALLERGIES
     Route: 048
  2. COLACE [Concomitant]
     Active Substance: DOCUSATE SODIUM
     Dosage: ^TAKE 1 CAPSULE TWICE DAILY AS NEEDED.^
     Route: 048
  3. LORAZEPAM. [Concomitant]
     Active Substance: LORAZEPAM
     Dosage: TAKE 1 TABLET TWICE DAILY AS NEEDED
     Route: 048
  4. CETIRIZINE HCL [Concomitant]
     Active Substance: CETIRIZINE HYDROCHLORIDE
     Route: 065
  5. XOLAIR [Suspect]
     Active Substance: OMALIZUMAB
     Route: 058
     Dates: start: 201206
  6. GABAPENTIN. [Concomitant]
     Active Substance: GABAPENTIN
     Route: 048
  7. FOLIC ACID. [Concomitant]
     Active Substance: FOLIC ACID
     Route: 048
  8. AMITRIPTYLINE [Concomitant]
     Active Substance: AMITRIPTYLINE
     Route: 065
  9. COMBIVENT [Concomitant]
     Active Substance: ALBUTEROL SULFATE\IPRATROPIUM BROMIDE
  10. XOLAIR [Suspect]
     Active Substance: OMALIZUMAB
     Indication: ASTHMA
     Route: 058
  11. FLUTICASONE PROPIONATE. [Concomitant]
     Active Substance: FLUTICASONE PROPIONATE
     Dosage: 50 MCG/ACT, USE 1-2 SPRAYS IN EACH NOSTRIL
     Route: 045
  12. SYMBICORT [Concomitant]
     Active Substance: BUDESONIDE\FORMOTEROL FUMARATE DIHYDRATE
     Indication: ASTHMA
  13. PROVENTIL [Concomitant]
     Active Substance: ALBUTEROL
  14. ESCITALOPRAM OXALATE. [Concomitant]
     Active Substance: ESCITALOPRAM OXALATE
     Route: 048
  15. IMIQUIMOD. [Concomitant]
     Active Substance: IMIQUIMOD
     Route: 065
  16. FISH OIL [Concomitant]
     Active Substance: FISH OIL
     Route: 048
  17. COLCHICINE. [Concomitant]
     Active Substance: COLCHICINE
     Route: 048
  18. COMPLERA [Concomitant]
     Active Substance: EMTRICITABINE\RILPIVIRINE HYDROCHLORIDE\TENOFOVIR DISOPROXIL FUMARATE
     Dosage: 200-25-300MG
     Route: 048
  19. CONDYLOX [Concomitant]
     Active Substance: PODOFILOX
     Route: 065
  20. CLOTRIMAZOLE. [Concomitant]
     Active Substance: CLOTRIMAZOLE
     Dosage: MOUTH/THROAT TROCHE
     Route: 065
  21. FLONASE [Concomitant]
     Active Substance: FLUTICASONE PROPIONATE
  22. ALBUTEROL SULFATE. [Concomitant]
     Active Substance: ALBUTEROL SULFATE
     Dosage: USE 1 UNIT DOSE IN NEBULIZER EVERY 4H AS NEEDED (2.5MG/3ML)
     Route: 055
  23. COLCRYS [Concomitant]
     Active Substance: COLCHICINE
     Dosage: ^TAKE 1 TABLET 2-3 TIMES A DAY DEPENDING ON PAIN^
     Route: 048
  24. PROAIR HFA [Concomitant]
     Active Substance: ALBUTEROL SULFATE
  25. ADVAIR HFA [Concomitant]
     Active Substance: FLUTICASONE PROPIONATE\SALMETEROL XINAFOATE
  26. SUMATRIPTAN SUCCINATE. [Concomitant]
     Active Substance: SUMATRIPTAN SUCCINATE
     Indication: MIGRAINE
     Route: 048
  27. SINGULAIR [Concomitant]
     Active Substance: MONTELUKAST SODIUM
     Indication: ASTHMA
  28. PREDNISONE. [Concomitant]
     Active Substance: PREDNISONE
     Route: 065
  29. XOLAIR [Suspect]
     Active Substance: OMALIZUMAB
     Route: 058
     Dates: start: 20141218
  30. CIALIS [Concomitant]
     Active Substance: TADALAFIL
     Route: 048
  31. SPIRIVA [Concomitant]
     Active Substance: TIOTROPIUM BROMIDE MONOHYDRATE
     Indication: ASTHMA
  32. ANDROGEL [Concomitant]
     Active Substance: TESTOSTERONE
     Dosage: 20.25MG/ACT (1.62%)
     Route: 062

REACTIONS (18)
  - Red cell distribution width increased [Unknown]
  - Blood bicarbonate decreased [Unknown]
  - Blood pH increased [Unknown]
  - Oxygen saturation increased [Unknown]
  - PO2 increased [Unknown]
  - Asthma [Unknown]
  - Headache [Unknown]
  - Dyspnoea [Unknown]
  - Mean platelet volume increased [Unknown]
  - Monocyte count increased [Unknown]
  - Haemoglobin decreased [Unknown]
  - Methaemoglobinaemia [Unknown]
  - Swelling [Recovered/Resolved]
  - Facial pain [Unknown]
  - PCO2 decreased [Unknown]
  - Middle insomnia [Unknown]
  - Pulmonary congestion [Unknown]
  - Chills [Unknown]

NARRATIVE: CASE EVENT DATE: 201206
